FAERS Safety Report 4271525-7 (Version None)
Quarter: 2004Q1

REPORT INFORMATION
  Report Type: 
  Country: None (occurrence: None)
  Receive Date: 20040113
  Receipt Date: 20040102
  Transmission Date: 20041129
  Serious: Yes (Hospitalization)
  Sender: FDA-Public Use
  Company Number: AT-JNJFOC-20031104219

PATIENT
  Age: 21 Year
  Sex: Male

DRUGS (18)
  1. HALOPERIDOL [Suspect]
     Dosage: SEE IMAGE
     Route: 042
     Dates: start: 20030316, end: 20030321
  2. HALOPERIDOL [Suspect]
     Dosage: SEE IMAGE
     Route: 042
     Dates: start: 20030322, end: 20030329
  3. VALPROATE SODIUM [Suspect]
     Dosage: SEE IMAGE
     Route: 042
     Dates: start: 20030314, end: 20030315
  4. VALPROATE SODIUM [Suspect]
     Dosage: SEE IMAGE
     Route: 042
     Dates: start: 20030316, end: 20030316
  5. VALPROATE SODIUM [Suspect]
     Dosage: SEE IMAGE
     Route: 042
     Dates: start: 20030317, end: 20030318
  6. VALPROATE SODIUM [Suspect]
     Dosage: SEE IMAGE
     Route: 042
     Dates: start: 20030319, end: 20030320
  7. VALPROATE SODIUM [Suspect]
     Dosage: SEE IMAGE
     Route: 042
     Dates: start: 20030321, end: 20030321
  8. VALPROATE SODIUM [Suspect]
     Dosage: SEE IMAGE
     Route: 042
     Dates: start: 20030322
  9. SEROQUEL [Suspect]
     Dosage: SEE IMAGE
     Route: 048
     Dates: start: 20030314, end: 20030315
  10. SEROQUEL [Suspect]
     Dosage: SEE IMAGE
     Route: 048
     Dates: start: 20030316, end: 20030319
  11. SEROQUEL [Suspect]
     Dosage: SEE IMAGE
     Route: 048
     Dates: start: 20030320, end: 20030321
  12. FRAGMIN [Suspect]
     Dosage: SEE IMAGE
     Route: 042
     Dates: start: 20030313, end: 20030319
  13. FRAGMIN [Suspect]
     Dosage: SEE IMAGE
     Route: 042
     Dates: start: 20030320, end: 20030329
  14. CLAFORAN [Suspect]
     Dosage: 6000 MG, INTRAVENOUS
     Route: 042
     Dates: start: 20030318, end: 20030325
  15. CLONAZEPAM [Concomitant]
  16. AKINETON [Concomitant]
  17. ENTUMIN (CLOTIAPINE)TABLETS [Concomitant]
  18. MAGNESIUM SULPHATE (MAGNESIUM SULFATE) [Concomitant]

REACTIONS (7)
  - ALANINE AMINOTRANSFERASE INCREASED [None]
  - ASPARTATE AMINOTRANSFERASE INCREASED [None]
  - BLOOD ALKALINE PHOSPHATASE INCREASED [None]
  - BLOOD CREATINE PHOSPHOKINASE INCREASED [None]
  - BLOOD LACTATE DEHYDROGENASE INCREASED [None]
  - DRUG INTERACTION POTENTIATION [None]
  - GAMMA-GLUTAMYLTRANSFERASE INCREASED [None]
